FAERS Safety Report 25480071 (Version 1)
Quarter: 2025Q2

REPORT INFORMATION
  Report Type: Spontaneous
  Country: ES (occurrence: ES)
  Receive Date: 20250625
  Receipt Date: 20250625
  Transmission Date: 20250716
  Serious: Yes (Life-Threatening, Hospitalization)
  Sender: ELI LILLY AND COMPANY
  Company Number: None

PATIENT
  Age: 44 Year
  Sex: Male

DRUGS (6)
  1. FLUOXETINE HYDROCHLORIDE [Interacting]
     Active Substance: FLUOXETINE HYDROCHLORIDE
     Indication: Intentional overdose
     Route: 048
     Dates: start: 20250323, end: 20250323
  2. PREGABALIN [Interacting]
     Active Substance: PREGABALIN
     Indication: Intentional overdose
     Route: 048
     Dates: start: 20250323, end: 20250323
  3. TOPIRAMATE [Interacting]
     Active Substance: TOPIRAMATE
     Indication: Intentional overdose
     Route: 048
     Dates: start: 20250323, end: 20250323
  4. LORMETAZEPAM [Interacting]
     Active Substance: LORMETAZEPAM
     Indication: Intentional overdose
     Route: 048
     Dates: start: 20250323, end: 20250323
  5. QUETIAPINE [Interacting]
     Active Substance: QUETIAPINE
     Indication: Intentional overdose
     Route: 048
     Dates: start: 20250323, end: 20250323
  6. PREMAX [PREGABALIN] [Concomitant]
     Indication: Product used for unknown indication
     Dosage: 75 MG, DAILY
     Route: 048
     Dates: start: 20230314, end: 20250322

REACTIONS (3)
  - Depressed level of consciousness [Recovered/Resolved]
  - Intentional overdose [Recovered/Resolved]
  - Drug interaction [Unknown]

NARRATIVE: CASE EVENT DATE: 20250323
